FAERS Safety Report 10416498 (Version 3)
Quarter: 2015Q1

REPORT INFORMATION
  Report Type: Spontaneous
  Country: US (occurrence: US)
  Receive Date: 20140828
  Receipt Date: 20150212
  Transmission Date: 20150720
  Serious: Yes (Hospitalization, Other)
  Sender: FDA-Public Use
  Company Number: US-GLAXOSMITHKLINE-A1085918A

PATIENT
  Age: 79 Year
  Sex: Female

DRUGS (8)
  1. SEROQUEL [Concomitant]
     Active Substance: QUETIAPINE FUMARATE
  2. NEURONTIN [Concomitant]
     Active Substance: GABAPENTIN
  3. LISINOPRIL. [Concomitant]
     Active Substance: LISINOPRIL
  4. FUROSEMIDE. [Concomitant]
     Active Substance: FUROSEMIDE
  5. LAMICTAL [Suspect]
     Active Substance: LAMOTRIGINE
     Indication: AFFECTIVE DISORDER
     Dosage: 200 MG TWICE A DAY.
     Route: 048
     Dates: start: 201208
  6. LAMICTAL [Suspect]
     Active Substance: LAMOTRIGINE
     Indication: DEPRESSION
  7. VENTOLIN [Suspect]
     Active Substance: ALBUTEROL SULFATE
     Indication: ASTHMA
     Dosage: 2 PUFFS TWICE A DAY.
     Route: 055
     Dates: start: 201208
  8. AMLODIPINE [Concomitant]
     Active Substance: AMLODIPINE BESYLATE

REACTIONS (10)
  - Hospitalisation [Unknown]
  - Asthenia [Unknown]
  - Dehydration [Unknown]
  - Neoplasm malignant [Unknown]
  - Anaemia [Unknown]
  - Memory impairment [Unknown]
  - Mental impairment [Unknown]
  - Abdominal hernia [Recovered/Resolved]
  - Chemotherapy [Unknown]
  - Parathyroidectomy [Recovered/Resolved]

NARRATIVE: CASE EVENT DATE: 20140805
